FAERS Safety Report 5244991-8 (Version None)
Quarter: 2007Q1

REPORT INFORMATION
  Report Type: 
  Country: None (occurrence: None)
  Receive Date: 20070223
  Receipt Date: 20070219
  Transmission Date: 20070707
  Serious: Yes (Death)
  Sender: FDA-Public Use
  Company Number: PHEH2007US02102

PATIENT
  Age: 4 Year
  Sex: Female
  Weight: 14.512 kg

DRUGS (2)
  1. TRILEPTAL [Suspect]
     Indication: CONVULSION
     Dosage: 1 ML, BID
     Dates: start: 20020101
  2. TRILEPTAL [Suspect]
     Dosage: 3 ML, BID

REACTIONS (1)
  - DEATH [None]
